FAERS Safety Report 6695496-9 (Version None)
Quarter: 2010Q2

REPORT INFORMATION
  Report Type: 
  Country: None (occurrence: None)
  Receive Date: 20100426
  Receipt Date: 20100412
  Transmission Date: 20101027
  Serious: Yes (Other)
  Sender: FDA-Public Use
  Company Number: US-ASTRAZENECA-2009UW16527

PATIENT
  Sex: Male

DRUGS (6)
  1. SEROQUEL [Suspect]
     Route: 048
     Dates: start: 20031208
  2. GEODON [Concomitant]
     Dates: start: 20030307
  3. ZOLOFT [Concomitant]
     Dates: start: 20030507
  4. AMITRIPTYLINE [Concomitant]
     Dosage: 2 AT NIGHT
     Dates: start: 20030507
  5. TOPAMAX [Concomitant]
     Dates: start: 20030505
  6. PAXIL [Concomitant]
     Dates: start: 20030909

REACTIONS (2)
  - NEUROPATHY PERIPHERAL [None]
  - TYPE 2 DIABETES MELLITUS [None]
